FAERS Safety Report 5347803-7 (Version None)
Quarter: 2007Q2

REPORT INFORMATION
  Report Type: 
  Country: None (occurrence: None)
  Receive Date: 20070516
  Receipt Date: 20070419
  Transmission Date: 20071010
  Serious: No
  Sender: FDA-Public Use
  Company Number: SPV1-2007-02300

PATIENT
  Age: 42 Year
  Sex: Male
  Weight: 95.2 kg

DRUGS (2)
  1. FOSRENOL [Suspect]
     Indication: RENAL DISORDER
     Dosage: 1000 MG 2 TABS PER MEAL, ORAL
     Route: 048
  2. COREG [Concomitant]

REACTIONS (2)
  - DYSGEUSIA [None]
  - PHARMACEUTICAL PRODUCT COMPLAINT [None]
